FAERS Safety Report 6290642-3 (Version None)
Quarter: 2009Q3

REPORT INFORMATION
  Report Type: 
  Country: None (occurrence: None)
  Receive Date: 20090730
  Receipt Date: 20090720
  Transmission Date: 20100115
  Serious: Yes (Other)
  Sender: FDA-Public Use
  Company Number: PHEH2008US09016

PATIENT
  Sex: Female

DRUGS (3)
  1. AREDIA [Suspect]
  2. CHEMOTHERAPEUTICS NOS [Concomitant]
  3. BLOOD TRANSFUSION, AUXILIARY PRODUCTS [Concomitant]

REACTIONS (20)
  - ANAEMIA [None]
  - ANHEDONIA [None]
  - ANXIETY [None]
  - ARTHRALGIA [None]
  - BALANCE DISORDER [None]
  - BONE DISORDER [None]
  - CONTUSION [None]
  - DEEP VEIN THROMBOSIS [None]
  - DISABILITY [None]
  - EXCORIATION [None]
  - FALL [None]
  - INJURY [None]
  - JOINT SPRAIN [None]
  - ORAL DISORDER [None]
  - ORAL SURGERY [None]
  - OSTEONECROSIS [None]
  - PAIN [None]
  - RED BLOOD CELL ABNORMALITY [None]
  - SPONDYLOLISTHESIS [None]
  - TOOTH FRACTURE [None]
